FAERS Safety Report 24132658 (Version 1)
Quarter: 2024Q3

REPORT INFORMATION
  Report Type: Spontaneous
  Country: US (occurrence: US)
  Receive Date: 20240724
  Receipt Date: 20240724
  Transmission Date: 20241017
  Serious: Yes (Death, Hospitalization, Other)
  Sender: The J.Molner Company
  Company Number: US-THE J. MOLNER COMPANY-202407000018

PATIENT
  Age: 80 Year
  Sex: Female

DRUGS (10)
  1. CIPROFLOXACIN [Suspect]
     Active Substance: CIPROFLOXACIN
     Indication: Product used for unknown indication
     Dosage: 500 MILLIGRAM, BID, FOR 10 DAYS
     Route: 065
  2. METRONIDAZOLE [Concomitant]
     Active Substance: METRONIDAZOLE
     Indication: Product used for unknown indication
     Dosage: 250 MILLIGRAM, BID
  3. FUROSEMIDE [Concomitant]
     Active Substance: FUROSEMIDE
  4. ATENOLOL [Concomitant]
     Active Substance: ATENOLOL
  5. VALSARTAN [Concomitant]
     Active Substance: VALSARTAN
  6. WARFARIN [Concomitant]
     Active Substance: WARFARIN
  7. VITAMINS [Concomitant]
     Active Substance: VITAMINS
  8. GINKGO [Concomitant]
     Active Substance: GINKGO
  9. ACETAMINOPHEN [Concomitant]
     Active Substance: ACETAMINOPHEN
  10. OXYCODONE [Concomitant]
     Active Substance: OXYCODONE
     Indication: Pain

REACTIONS (6)
  - Multiple organ dysfunction syndrome [Fatal]
  - Hepatitis [Unknown]
  - Hepatic encephalopathy [Unknown]
  - Jaundice [Unknown]
  - Ascites [Unknown]
  - Hepatosplenomegaly [Unknown]
